FAERS Safety Report 6406779-1 (Version None)
Quarter: 2009Q4

REPORT INFORMATION
  Report Type: 
  Country: None (occurrence: None)
  Receive Date: 20091020
  Receipt Date: 20091007
  Transmission Date: 20100525
  Serious: Yes (Hospitalization)
  Sender: FDA-Public Use
  Company Number: FR-PFIZER INC-2009280035

PATIENT
  Age: 11 Day

DRUGS (1)
  1. XANAX [Suspect]
     Indication: POSTPARTUM DEPRESSION
     Dosage: 0.25 MG, 3X/DAY
     Route: 063
     Dates: start: 20090907, end: 20090918

REACTIONS (2)
  - DRUG EXPOSURE VIA BREAST MILK [None]
  - MALAISE [None]
